FAERS Safety Report 7359078-8 (Version None)
Quarter: 2011Q1

REPORT INFORMATION
  Report Type: 
  Country: None (occurrence: None)
  Receive Date: 20110317
  Receipt Date: 20110304
  Transmission Date: 20110831
  Serious: Yes (Hospitalization)
  Sender: FDA-Public Use
  Company Number: US-BAYER-201032481NA

PATIENT
  Sex: Female
  Weight: 112 kg

DRUGS (4)
  1. IBUPROFEN [Concomitant]
     Dosage: UNK
     Dates: start: 20080101
  2. UNCODEABLE ^UNCLASSIFIABLE^ [Concomitant]
     Dosage: UNK
     Dates: start: 20071101
  3. YAZ [Suspect]
     Indication: CONTRACEPTION
     Dosage: 1 TAB/DAY
     Route: 048
     Dates: start: 20071101, end: 20090901
  4. CEPHALEXIN [Concomitant]
     Dosage: UNK
     Dates: start: 20071201, end: 20080101

REACTIONS (4)
  - PAIN [None]
  - GALLBLADDER DISORDER [None]
  - ABDOMINAL PAIN [None]
  - ANXIETY [None]
